FAERS Safety Report 15946511 (Version 1)
Quarter: 2019Q1

REPORT INFORMATION
  Report Type: Spontaneous
  Country: IR (occurrence: IR)
  Receive Date: 20190211
  Receipt Date: 20190211
  Transmission Date: 20190417
  Serious: Yes (Other)
  Sender: FDA-Public Use
  Company Number: IR-ASTRAZENECA-2019SE21390

PATIENT
  Age: 21 Year
  Sex: Female

DRUGS (6)
  1. LITHIUM CARBONATE. [Concomitant]
     Active Substance: LITHIUM CARBONATE
     Indication: BIPOLAR DISORDER
     Dosage: UP TO 1200 MG/DAY WITH 1 MG/DL OF SERUM LEVEL,
  2. SUCCINYL CHOLINE [Concomitant]
     Active Substance: SUCCINYLCHOLINE
     Dosage: 25 MG
     Route: 042
  3. QUETIAPINE. [Suspect]
     Active Substance: QUETIAPINE
     Indication: BIPOLAR DISORDER
     Route: 048
  4. BIPERIDEN [Suspect]
     Active Substance: BIPERIDEN
     Indication: BIPOLAR DISORDER
     Route: 065
  5. THIOPENTAL SODIUM. [Concomitant]
     Active Substance: THIOPENTAL SODIUM
     Dosage: 150 MG
     Route: 042
  6. ATROPINE. [Concomitant]
     Active Substance: ATROPINE
     Dosage: 0.5 MG IV
     Route: 042

REACTIONS (1)
  - Catatonia [Recovered/Resolved]
